FAERS Safety Report 8982808 (Version 1)
Quarter: 2012Q4

REPORT INFORMATION
  Report Type: Report from Study
  Country: DE (occurrence: DE)
  Receive Date: 20121221
  Receipt Date: 20121221
  Transmission Date: 20130627
  Serious: Yes (Hospitalization)
  Sender: FDA-Public Use
  Company Number: DE-BAXTER-2012BAX027396

PATIENT
  Age: 65 Year
  Sex: Female
  Weight: 105 kg

DRUGS (5)
  1. CYCLOPHOSPHAMID TROCKENSUBSTANZ 200 MG BAXTER ONCOLOGY [Suspect]
     Indication: BREAST CANCER
     Route: 042
     Dates: start: 20091104
  2. BEVACIZUMAB [Suspect]
     Indication: BREAST CANCER
     Route: 042
     Dates: start: 20091104
  3. EPIRUBICIN [Suspect]
     Indication: BREAST CANCER
     Route: 042
     Dates: start: 20091104
  4. FLUOROURACIL [Suspect]
     Indication: BREAST CANCER
     Route: 042
     Dates: start: 20091104
  5. DOCETAXEL [Suspect]
     Indication: BREAST CANCER
     Route: 042
     Dates: start: 20100106

REACTIONS (6)
  - Dehydration [Recovered/Resolved]
  - Diarrhoea [None]
  - Oral disorder [None]
  - General physical health deterioration [None]
  - Hypophagia [None]
  - Cardiovascular disorder [None]
